FAERS Safety Report 4916807-8 (Version None)
Quarter: 2006Q1

REPORT INFORMATION
  Report Type: 
  Country: None (occurrence: None)
  Receive Date: 20060220
  Receipt Date: 20060206
  Transmission Date: 20060701
  Serious: Yes (Hospitalization)
  Sender: FDA-Public Use
  Company Number: JP-ROCHE-435737

PATIENT
  Age: 9 Year
  Sex: Male

DRUGS (4)
  1. TAMIFLU [Suspect]
     Indication: INFLUENZA
     Route: 048
     Dates: start: 20060206, end: 20060206
  2. CISDYNE [Concomitant]
     Route: 048
  3. ASVERIN [Concomitant]
     Route: 048
  4. ACETAMINOPHEN [Concomitant]
     Route: 048

REACTIONS (4)
  - BLEEDING TIME [None]
  - DELIRIUM [None]
  - ENCEPHALOPATHY [None]
  - HAEMORRHAGIC DIATHESIS [None]
